FAERS Safety Report 7551157-5 (Version None)
Quarter: 2011Q2

REPORT INFORMATION
  Report Type: 
  Country: None (occurrence: None)
  Receive Date: 20110609
  Receipt Date: 20110524
  Transmission Date: 20111010
  Serious: Yes (Hospitalization, Other)
  Sender: FDA-Public Use
  Company Number: 2011MA006482

PATIENT
  Age: 38 Year
  Sex: Male

DRUGS (11)
  1. CANDESARTAN CILEXETIL [Concomitant]
  2. DIGOXIN [Concomitant]
  3. FUROSEMIDE [Concomitant]
  4. RIFAMPIN [Suspect]
     Indication: TUBERCULOSIS
     Dosage: 300 MG
  5. VOGLIBOSE [Concomitant]
  6. ETHAMBUTOL [Concomitant]
  7. CILEXTIL [Concomitant]
  8. METFORMIN HCL [Concomitant]
  9. ISONIAZID [Concomitant]
  10. GLIMEPIRIDE [Concomitant]
  11. PYRAZIMAMIDE [Concomitant]

REACTIONS (5)
  - HAEMATOCRIT DECREASED [None]
  - HAEMOGLOBIN DECREASED [None]
  - LEUKOCYTOCLASTIC VASCULITIS [None]
  - FIBRIN D DIMER INCREASED [None]
  - FIBRIN DEGRADATION PRODUCTS INCREASED [None]
